FAERS Safety Report 21047658 (Version 1)
Quarter: 2022Q3

REPORT INFORMATION
  Report Type: Spontaneous
  Country: US (occurrence: None)
  Receive Date: 20220705
  Receipt Date: 20220705
  Transmission Date: 20221027
  Serious: Yes (unspecified)
  Sender: FDA-Public Use
  Company Number: None

PATIENT
  Age: 75 Year
  Sex: Male
  Weight: 76.95 kg

DRUGS (15)
  1. AMOXICILLIN\CLAVULANATE POTASSIUM [Suspect]
     Active Substance: AMOXICILLIN\CLAVULANATE POTASSIUM
     Indication: Abscess
     Dosage: FREQUENCY : TWICE A DAY;?
     Route: 048
     Dates: start: 20220630, end: 20220630
  2. ASPIRIN [Concomitant]
     Active Substance: ASPIRIN
  3. PRASTERONE [Concomitant]
     Active Substance: PRASTERONE
  4. MAGNESIUM [Concomitant]
     Active Substance: MAGNESIUM
  5. ZINC [Concomitant]
     Active Substance: ZINC
  6. VITAMIN B12 [Concomitant]
     Active Substance: CYANOCOBALAMIN
  7. B-complex plus energy [Concomitant]
  8. One Daily Maximum [Concomitant]
  9. ACETAMINOPHEN [Concomitant]
     Active Substance: ACETAMINOPHEN
  10. CETIRIZINE HYDROCHLORIDE [Concomitant]
     Active Substance: CETIRIZINE HYDROCHLORIDE
  11. ANTIHISTAMINES NOS [Concomitant]
     Active Substance: ANTIHISTAMINES NOS
  12. Anti-Itch Cream 2% [Concomitant]
  13. DIPHENHYDRAMINE [Concomitant]
     Active Substance: DIPHENHYDRAMINE
  14. hydrochloride 2% [Concomitant]
  15. zinc acetate 0.1% [Concomitant]

REACTIONS (4)
  - Abdominal pain upper [None]
  - Vomiting projectile [None]
  - Diarrhoea [None]
  - Nausea [None]

NARRATIVE: CASE EVENT DATE: 20220630
